FAERS Safety Report 12735253 (Version 3)
Quarter: 2017Q1

REPORT INFORMATION
  Report Type: Spontaneous
  Country: US (occurrence: US)
  Receive Date: 20160912
  Receipt Date: 20170303
  Transmission Date: 20170428
  Serious: Yes (Hospitalization)
  Sender: FDA-Public Use
  Company Number: US-JNJFOC-20160800812

PATIENT
  Age: 34 Year
  Sex: Male

DRUGS (2)
  1. XARELTO [Suspect]
     Active Substance: RIVAROXABAN
     Indication: PULMONARY EMBOLISM
     Dosage: 10MG AND 20MG
     Route: 048
     Dates: start: 20130712, end: 20141102
  2. XARELTO [Suspect]
     Active Substance: RIVAROXABAN
     Indication: PULMONARY EMBOLISM
     Dosage: 10MG AND 20MG
     Route: 048
     Dates: end: 20150127

REACTIONS (4)
  - Haemoptysis [Recovering/Resolving]
  - Off label use [Unknown]
  - Anaemia [Recovering/Resolving]
  - Prescribed underdose [Unknown]

NARRATIVE: CASE EVENT DATE: 20130712
